FAERS Safety Report 15963601 (Version 1)
Quarter: 2019Q1

REPORT INFORMATION
  Report Type: Spontaneous
  Country: DE (occurrence: DE)
  Receive Date: 20190214
  Receipt Date: 20190214
  Transmission Date: 20190417
  Serious: Yes (Hospitalization)
  Sender: FDA-Public Use
  Company Number: DE-TEVA-2019-DE-1009628

PATIENT
  Age: 82 Year
  Sex: Female
  Weight: 63 kg

DRUGS (6)
  1. TRIMIPRAMIN 40MG/ML [Concomitant]
  2. TORASEMID 10 MG [Concomitant]
     Active Substance: TORSEMIDE
  3. PROPRANOLOL 10MG [Concomitant]
  4. BACLOFEN-RATIOPHARM 25 MG TABLETTEN [Suspect]
     Active Substance: BACLOFEN
     Indication: BACK PAIN
     Dosage: 25 MILLIGRAM DAILY; 1. INGESTION TUES EVENING, 2ND WED MORNING, 3RD WED NOON
     Route: 048
     Dates: start: 20181218, end: 20181219
  5. VIANI MITE 50 UG/100 UG DISKUS [Concomitant]
  6. ALLOPURINOL 100MG [Concomitant]
     Active Substance: ALLOPURINOL

REACTIONS (5)
  - Confusional state [Recovered/Resolved]
  - Amnesia [Recovered/Resolved]
  - Agitation [Recovered/Resolved]
  - Hallucination [Recovered/Resolved]
  - Disorientation [Recovered/Resolved]

NARRATIVE: CASE EVENT DATE: 20181219
